FAERS Safety Report 4840354-5 (Version None)
Quarter: 2005Q4

REPORT INFORMATION
  Report Type: 
  Country: None (occurrence: None)
  Receive Date: 20051025
  Receipt Date: 20040920
  Transmission Date: 20060501
  Serious: No
  Sender: FDA-Public Use
  Company Number: 2004-03078

PATIENT
  Age: 28 Year

DRUGS (1)
  1. TUBERSOL [Suspect]
     Indication: TUBERCULIN TEST
     Dosage: S.C.
     Route: 058
     Dates: start: 20040712

REACTIONS (7)
  - INJECTION SITE ERYTHEMA [None]
  - INJECTION SITE INDURATION [None]
  - INJECTION SITE PAIN [None]
  - INJECTION SITE REACTION [None]
  - MEDICATION ERROR [None]
  - PYREXIA [None]
  - TUBERCULIN TEST POSITIVE [None]
